FAERS Safety Report 9207743 (Version 1)
Quarter: 2013Q2

REPORT INFORMATION
  Report Type: Spontaneous
  Country: US (occurrence: US)
  Receive Date: 20130403
  Receipt Date: 20130403
  Transmission Date: 20140414
  Serious: Yes (Hospitalization)
  Sender: FDA-Public Use
  Company Number: US-GLAXOSMITHKLINE-A0700841A

PATIENT
  Sex: Female
  Weight: 81.8 kg

DRUGS (10)
  1. AVANDIA [Suspect]
     Indication: TYPE 2 DIABETES MELLITUS
     Dosage: 4MG TWICE PER DAY
     Route: 048
     Dates: end: 2007
  2. MYSOLINE [Concomitant]
  3. LIPITOR [Concomitant]
  4. LOPID [Concomitant]
  5. INSULIN [Concomitant]
  6. DIOVAN [Concomitant]
  7. LOTENSIN [Concomitant]
  8. LEVOXYL [Concomitant]
  9. ZOLOFT [Concomitant]
  10. LOPRESSOR [Concomitant]

REACTIONS (3)
  - Cerebrovascular accident [Not Recovered/Not Resolved]
  - Myocardial infarction [Unknown]
  - Cardiac failure congestive [Unknown]
